FAERS Safety Report 9454049 (Version 1)
Quarter: 2013Q3

REPORT INFORMATION
  Report Type: Report from Study
  Country: US (occurrence: US)
  Receive Date: 20130812
  Receipt Date: 20130812
  Transmission Date: 20140515
  Serious: Yes (Hospitalization)
  Sender: FDA-Public Use
  Company Number: US-CUBIST PHARMACEUTICALS, INC.-2013CBST000187

PATIENT
  Age: 20 Year
  Sex: Male
  Weight: 66 kg

DRUGS (5)
  1. VANCOMYCIN [Suspect]
     Indication: OSTEOMYELITIS
     Dosage: UNK UNK, UNK
  2. VANCOMYCIN [Suspect]
     Dosage: 1 G, Q12H
     Route: 042
     Dates: start: 20110128, end: 20110129
  3. DAPTOMYCIN [Suspect]
     Indication: OSTEOMYELITIS
     Dosage: 400 MG, Q24H
     Route: 042
     Dates: start: 20110129, end: 20110201
  4. DAPTOMYCIN [Suspect]
     Indication: OFF LABEL USE
     Dosage: 6.06 MG/KG, Q24H
     Route: 042
     Dates: start: 20110129, end: 20110201
  5. CLEOCIN                            /00166002/ [Concomitant]
     Indication: OSTEOMYELITIS
     Dosage: 450 MG, Q6H
     Route: 048
     Dates: start: 20110127, end: 20110128

REACTIONS (1)
  - Rash [Not Recovered/Not Resolved]
